FAERS Safety Report 4705640-8 (Version None)
Quarter: 2005Q3

REPORT INFORMATION
  Report Type: 
  Country: None (occurrence: None)
  Receive Date: 20050701
  Receipt Date: 20050616
  Transmission Date: 20060218
  Serious: Yes (Hospitalization)
  Sender: FDA-Public Use
  Company Number: JP-BOEHRINGER INGELHEIM PHARMACEUTICALS, INC.-2005-DE-02447GL

PATIENT
  Sex: Male

DRUGS (8)
  1. TELMISARTAN [Suspect]
     Indication: HYPERTENSION
     Route: 048
     Dates: start: 20041214, end: 20050424
  2. PAROXETINE HYDROCHLORIDE [Suspect]
     Indication: ANXIETY DISORDER
     Route: 048
     Dates: start: 20050221, end: 20050501
  3. ASPIRIN [Concomitant]
     Dates: start: 20041210
  4. FENOFIBRATE [Concomitant]
     Dates: start: 20050124
  5. BROTIZOLAM [Concomitant]
     Dates: start: 20041214
  6. ALPRAZOLAM [Concomitant]
     Dates: start: 20041227
  7. VALPROIC ACID [Concomitant]
  8. CANDESARTAN CILEXETIL [Concomitant]
     Dates: start: 20050425

REACTIONS (5)
  - BLOOD PRESSURE DECREASED [None]
  - EPILEPSY [None]
  - FOAMING AT MOUTH [None]
  - INCONTINENCE [None]
  - MALAISE [None]
